FAERS Safety Report 22609946 (Version 1)
Quarter: 2023Q2

REPORT INFORMATION
  Report Type: Spontaneous
  Country: KY (occurrence: KY)
  Receive Date: 20230616
  Receipt Date: 20230616
  Transmission Date: 20230721
  Serious: Yes (Other)
  Sender: FDA-Public Use
  Company Number: KY-OTSUKA-2023_015404

PATIENT

DRUGS (1)
  1. ABILIFY MAINTENA [Suspect]
     Active Substance: ARIPIPRAZOLE
     Indication: Mania
     Dosage: 400 MG
     Route: 065

REACTIONS (2)
  - Hallucination, auditory [Recovered/Resolved]
  - Product use in unapproved indication [Unknown]
